FAERS Safety Report 9018780 (Version 3)
Quarter: 2013Q1

REPORT INFORMATION
  Report Type: Report from Study
  Country: US (occurrence: US)
  Receive Date: 20130118
  Receipt Date: 20130225
  Transmission Date: 20140127
  Serious: Yes (Hospitalization)
  Sender: FDA-Public Use
  Company Number: US-ACTELION-A-US2013-78044

PATIENT
  Age: 80 Year
  Sex: Female

DRUGS (4)
  1. VENTAVIS [Suspect]
     Indication: PULMONARY ARTERIAL HYPERTENSION
     Dosage: UNK
     Route: 055
  2. COUMADIN [Suspect]
  3. SILDENAFIL [Concomitant]
  4. LETAIRIS [Concomitant]

REACTIONS (3)
  - Cerebrovascular accident [Unknown]
  - Haemorrhage [Unknown]
  - Lip pain [Unknown]
